FAERS Safety Report 16783259 (Version 2)
Quarter: 2025Q3

REPORT INFORMATION
  Report Type: Spontaneous
  Country: EU (occurrence: EU)
  Receive Date: 20190907
  Receipt Date: 20250717
  Transmission Date: 20251020
  Serious: Yes (Death, Hospitalization, Other)
  Sender: TEVA
  Company Number: EU-EMA-DD-20190821-SAHU_K-120506

PATIENT
  Age: 56 Year
  Sex: Female

DRUGS (6)
  1. CAPECITABINE [Suspect]
     Active Substance: CAPECITABINE
     Indication: Breast cancer metastatic
     Route: 065
     Dates: start: 201901, end: 201903
  2. KADCYLA [Suspect]
     Active Substance: ADO-TRASTUZUMAB EMTANSINE
     Indication: Breast cancer metastatic
     Route: 042
     Dates: start: 201801, end: 201812
  3. IBANDRONIC ACID [Suspect]
     Active Substance: IBANDRONIC ACID
     Indication: Breast cancer metastatic
     Dosage: ONGOING: NO, 6 MG
     Route: 042
     Dates: start: 20161003, end: 20171220
  4. LAPATINIB [Concomitant]
     Active Substance: LAPATINIB
     Indication: Breast cancer metastatic
     Route: 065
     Dates: start: 201901, end: 201903
  5. HERCEPTIN [Suspect]
     Active Substance: TRASTUZUMAB
     Indication: Breast cancer metastatic
     Dosage: DOSAGE TEXT: NO, 600 MG
     Route: 058
     Dates: start: 20161003, end: 20171220
  6. PACLITAXEL [Concomitant]
     Active Substance: PACLITAXEL
     Indication: Breast cancer metastatic
     Dosage: NO, 80 MG/M2
     Route: 065
     Dates: start: 20161003, end: 201712

REACTIONS (5)
  - Coma [Fatal]
  - Neuromuscular toxicity [Unknown]
  - Gastrointestinal toxicity [Fatal]
  - Haematotoxicity [Unknown]
  - Transaminases increased [Unknown]

NARRATIVE: CASE EVENT DATE: 20170101
